FAERS Safety Report 25587656 (Version 1)
Quarter: 2025Q3

REPORT INFORMATION
  Report Type: Spontaneous
  Country: CN (occurrence: CN)
  Receive Date: 20250721
  Receipt Date: 20250721
  Transmission Date: 20251020
  Serious: Yes (Life-Threatening)
  Sender: RIGEL PHARMACEUTICALS
  Company Number: CN-RIGEL PHARMACEUTICALS, INC-20250700181

PATIENT
  Age: 70 Year
  Sex: Male

DRUGS (1)
  1. GAVRETO [Suspect]
     Active Substance: PRALSETINIB
     Indication: Lung adenocarcinoma
     Dosage: 400 MG,QD
     Route: 048
     Dates: end: 20250425

REACTIONS (2)
  - Neutrophil count decreased [Unknown]
  - Pyrexia [Unknown]

NARRATIVE: CASE EVENT DATE: 20250507
